FAERS Safety Report 8219914-X (Version None)
Quarter: 2012Q1

REPORT INFORMATION
  Report Type: 
  Country: None (occurrence: None)
  Receive Date: 20120319
  Receipt Date: 20120309
  Transmission Date: 20120608
  Serious: Yes (Other)
  Sender: FDA-Public Use
  Company Number: US-CELGENEUS-163-21880-12031200

PATIENT
  Sex: Male

DRUGS (15)
  1. FERROUS FUMARATE [Concomitant]
     Dosage: 324 MILLIGRAM
     Route: 065
  2. ASPIRIN [Concomitant]
     Dosage: 81 MILLIGRAM
     Route: 065
  3. COLACE [Concomitant]
     Dosage: 100 MILLIGRAM
     Route: 065
  4. PRILOSEC [Concomitant]
     Dosage: 20 MILLIGRAM
     Route: 065
  5. FLORINEF [Concomitant]
     Dosage: .1 MILLIGRAM
     Route: 065
  6. ROXICODONE [Concomitant]
     Dosage: 5 MILLIGRAM
     Route: 065
  7. OXYCODONE HCL [Concomitant]
     Dosage: 15 MILLIGRAM
     Route: 065
  8. RANITIDINE [Concomitant]
     Dosage: 150 MILLIGRAM
     Route: 065
  9. REVLIMID [Suspect]
     Dosage: 5 MILLIGRAM
     Route: 048
     Dates: start: 20120301
  10. WARFARIN SODIUM [Concomitant]
     Dosage: 10 MILLIGRAM
     Route: 065
  11. DIAZEPAM [Concomitant]
     Route: 065
  12. DEXAMETHASONE [Concomitant]
     Dosage: 4 MILLIGRAM
     Route: 065
  13. REVLIMID [Suspect]
     Indication: MULTIPLE MYELOMA
     Dosage: 10 MILLIGRAM
     Route: 048
     Dates: start: 20110901
  14. LOVASTATIN [Concomitant]
     Dosage: 40 MILLIGRAM
     Route: 065
  15. HUMULIN R [Concomitant]
     Dosage: 70/30
     Route: 065

REACTIONS (1)
  - PENILE HAEMORRHAGE [None]
